FAERS Safety Report 17647086 (Version 1)
Quarter: 2020Q2

REPORT INFORMATION
  Report Type: Spontaneous
  Country: JP (occurrence: JP)
  Receive Date: 20200408
  Receipt Date: 20200408
  Transmission Date: 20200713
  Serious: Yes (Hospitalization, Other)
  Sender: FDA-Public Use
  Company Number: JP-PFIZER INC-2020141904

PATIENT
  Age: 24 Year
  Sex: Female

DRUGS (2)
  1. LYRICA [Suspect]
     Active Substance: PREGABALIN
     Indication: INTERCOSTAL NEURALGIA
     Dosage: 300 MG, DAILY
     Route: 048
     Dates: start: 20200305
  2. CLOTIAZEPAM [Suspect]
     Active Substance: CLOTIAZEPAM
     Dosage: 10 MG, 2X/DAY

REACTIONS (2)
  - Dizziness [Recovering/Resolving]
  - Altered state of consciousness [Recovering/Resolving]

NARRATIVE: CASE EVENT DATE: 20200328
